FAERS Safety Report 20158780 (Version 1)
Quarter: 2021Q4

REPORT INFORMATION
  Report Type: Spontaneous
  Country: AR (occurrence: AR)
  Receive Date: 20211208
  Receipt Date: 20211208
  Transmission Date: 20220303
  Serious: Yes (Other)
  Sender: FDA-Public Use
  Company Number: AR-PFIZER INC-2021900580

PATIENT
  Age: 40 Year
  Sex: Female

DRUGS (1)
  1. ENBREL [Suspect]
     Active Substance: ETANERCEPT
     Indication: Psoriasis
     Dosage: 50 MG 1 DOSE EVERY 15 DAYS
     Route: 065
     Dates: start: 20180926

REACTIONS (4)
  - Off label use [Unknown]
  - Gallbladder disorder [Recovered/Resolved]
  - Asthma [Unknown]
  - Psoriasis [Unknown]

NARRATIVE: CASE EVENT DATE: 20180926
